FAERS Safety Report 5957612-3 (Version None)
Quarter: 2008Q4

REPORT INFORMATION
  Report Type: 
  Country: None (occurrence: None)
  Receive Date: 20081107
  Receipt Date: 20081105
  Transmission Date: 20090506
  Serious: Yes (Death, Hospitalization)
  Sender: FDA-Public Use
  Company Number: 2008BI009010

PATIENT
  Age: 40 Year
  Sex: Female

DRUGS (2)
  1. TYSABRI [Suspect]
     Indication: MULTIPLE SCLEROSIS
     Dosage: 300 MG; QM; IV
     Route: 042
     Dates: start: 20070905, end: 20080428
  2. AVONEX [Concomitant]

REACTIONS (3)
  - ASTHENIA [None]
  - MENTAL STATUS CHANGES [None]
  - UPPER RESPIRATORY TRACT INFECTION [None]
